FAERS Safety Report 14931394 (Version 1)
Quarter: 2018Q2

REPORT INFORMATION
  Report Type: Spontaneous
  Country: BE (occurrence: BE)
  Receive Date: 20180524
  Receipt Date: 20180524
  Transmission Date: 20180711
  Serious: Yes (Death, Other)
  Sender: FDA-Public Use
  Company Number: BE-BEH-2018090905

PATIENT
  Age: 51 Year
  Sex: Male

DRUGS (1)
  1. HUMAN IMMUNOGLOBULIN IV (INN) [Suspect]
     Active Substance: HUMAN IMMUNOGLOBULIN G
     Indication: GOOD SYNDROME
     Dosage: UNK, QMT
     Route: 042

REACTIONS (1)
  - Drug ineffective [Fatal]
